FAERS Safety Report 10566745 (Version 10)
Quarter: 2016Q3

REPORT INFORMATION
  Report Type: Report from Study
  Country: BR (occurrence: BR)
  Receive Date: 20141105
  Receipt Date: 20160706
  Transmission Date: 20161109
  Serious: Yes (Life-Threatening, Hospitalization, Other)
  Sender: FDA-Public Use
  Company Number: PHHY2013BR006425

PATIENT
  Age: 57 Year
  Sex: Female
  Weight: 42 kg

DRUGS (25)
  1. ONBREZ BREEZHALER [Suspect]
     Active Substance: INDACATEROL
     Indication: PRODUCT USED FOR UNKNOWN INDICATION
     Route: 065
  2. PREDNISONE. [Suspect]
     Active Substance: PREDNISONE
     Indication: PRODUCT USED FOR UNKNOWN INDICATION
     Route: 065
  3. SINGULAIR [Suspect]
     Active Substance: MONTELUKAST SODIUM
     Indication: PRODUCT USED FOR UNKNOWN INDICATION
     Route: 065
  4. CLONAZEPAM. [Concomitant]
     Active Substance: CLONAZEPAM
     Indication: SLEEP DISORDER
     Dosage: 1 DF, QD
     Route: 065
  5. CLAVULIN [Concomitant]
     Active Substance: AMOXICILLIN\CLAVULANIC ACID
     Indication: PRODUCT USED FOR UNKNOWN INDICATION
     Route: 065
  6. HIGROTON [Suspect]
     Active Substance: CHLORTHALIDONE
     Indication: PRODUCT USED FOR UNKNOWN INDICATION
     Route: 065
  7. GABAPENTIN. [Concomitant]
     Active Substance: GABAPENTIN
     Indication: PRODUCT USED FOR UNKNOWN INDICATION
     Dosage: 1 DF (400 MG), QD
     Route: 048
  8. XOLAIR [Suspect]
     Active Substance: OMALIZUMAB
     Indication: BRONCHIECTASIS
     Dosage: 150 MG, EACH 15 DAYS
     Route: 058
     Dates: start: 20121207
  9. XOLAIR [Suspect]
     Active Substance: OMALIZUMAB
     Dosage: 150 MG, QMO
     Route: 058
  10. OXYGEN. [Suspect]
     Active Substance: OXYGEN
     Indication: PRODUCT USED FOR UNKNOWN INDICATION
     Route: 065
  11. ALENIA                             /01538101/ [Concomitant]
     Active Substance: BUDESONIDE\FORMOTEROL FUMARATE
     Indication: LUNG DISORDER
     Dosage: 2 DF, QD
     Route: 065
  12. XOLAIR [Suspect]
     Active Substance: OMALIZUMAB
     Dosage: 150 MG, QMO (TWICE)
     Route: 058
     Dates: start: 2013
  13. DAXAS [Concomitant]
     Active Substance: ROFLUMILAST
     Indication: DYSPNOEA
     Dosage: 500 MG, QD (STARTED 2 YEARS AGO)
     Route: 048
  14. ALENIA                             /01538101/ [Concomitant]
     Active Substance: BUDESONIDE\FORMOTEROL FUMARATE
     Indication: ASTHMA
     Dosage: 12 + 400 (UNITS UNSPECIFIED), BID (STARTED 2 YEARS AGO)
     Route: 055
  15. PREDSIM [Concomitant]
     Active Substance: PREDNISOLONE
     Indication: PRODUCT USED FOR UNKNOWN INDICATION
     Route: 065
  16. VENLAFAXINE [Concomitant]
     Active Substance: VENLAFAXINE HYDROCHLORIDE
     Indication: DEPRESSION
     Dosage: 1 DF, QD
     Route: 065
  17. DAXAS [Concomitant]
     Active Substance: ROFLUMILAST
     Indication: COUGH
     Dosage: UNK, QOD
     Route: 065
  18. BAMIFIX [Concomitant]
     Active Substance: BAMIFYLLINE HYDROCHLORIDE
     Indication: BRONCHIAL DISORDER
     Dosage: 2 DF, 2 TAB/DAY (300 MG), QD (2 YEARS AGO)
     Route: 048
  19. D-3 [Concomitant]
     Active Substance: CHOLECALCIFEROL
     Indication: THYROID DISORDER
     Dosage: 1 DF, QD
     Route: 065
  20. BAMIFIX [Concomitant]
     Active Substance: BAMIFYLLINE HYDROCHLORIDE
     Indication: LUNG DISORDER
     Dosage: 1 DF, QD
     Route: 065
  21. DUOVENT [Concomitant]
     Active Substance: FENOTEROL HYDROBROMIDE
     Indication: DYSPNOEA
     Dosage: UNK (2 YEARS AGO)
     Route: 065
  22. XOLAIR [Suspect]
     Active Substance: OMALIZUMAB
     Indication: ASTHMA
     Dosage: 150 MG, 1 AMPOULE, QMO
     Route: 058
     Dates: start: 2012, end: 2012
  23. FORASEQ [Suspect]
     Active Substance: BUDESONIDE\FORMOTEROL FUMARATE
     Indication: PRODUCT USED FOR UNKNOWN INDICATION
     Route: 065
  24. LANTUS [Suspect]
     Active Substance: INSULIN GLARGINE
     Indication: PRODUCT USED FOR UNKNOWN INDICATION
     Route: 065
  25. PURAN [Concomitant]
     Active Substance: LEVOTHYROXINE SODIUM
     Indication: THYROID DISORDER
     Dosage: 1 DF, QD
     Route: 065

REACTIONS (16)
  - Lung disorder [Not Recovered/Not Resolved]
  - Blood disorder [Recovered/Resolved]
  - Thrombosis [Unknown]
  - Bladder disorder [Unknown]
  - Coma [Unknown]
  - Cough [Recovering/Resolving]
  - Oxygen consumption decreased [Unknown]
  - Asthmatic crisis [Unknown]
  - Dyspnoea [Not Recovered/Not Resolved]
  - Weight decreased [Recovering/Resolving]
  - Product use issue [Unknown]
  - Speech disorder [Unknown]
  - Weight increased [Recovering/Resolving]
  - Asthenia [Recovering/Resolving]
  - Pneumonia [Recovering/Resolving]
  - Wound [Unknown]

NARRATIVE: CASE EVENT DATE: 2012
